FAERS Safety Report 4750394-2 (Version None)
Quarter: 2005Q3

REPORT INFORMATION
  Report Type: 
  Country: None (occurrence: None)
  Receive Date: 20050818
  Receipt Date: 20050802
  Transmission Date: 20060218
  Serious: Yes (Hospitalization)
  Sender: FDA-Public Use
  Company Number: 2005EU001773

PATIENT
  Age: 56 Year
  Sex: Female

DRUGS (4)
  1. FK506 (TACROLIMUS) CAPSULES [Suspect]
     Indication: RENAL TRANSPLANT
     Dosage: 0.00 MG
     Dates: end: 20041110
  2. DACLIZUMAB (DACLIZUMAB) [Suspect]
     Indication: RENAL TRANSPLANT
     Dosage: 75.00 MG, D, IV NOS
     Route: 042
     Dates: start: 20040702, end: 20040819
  3. MYCOPHENOLATE MOFETIL (MYCOPHENOLATE MOFETIL) [Suspect]
     Indication: RENAL TRANSPLANT
     Dosage: 250.00 MG, BID, ORAL
     Route: 048
     Dates: start: 20041028, end: 20050117
  4. PREDNISONE [Suspect]
     Indication: RENAL TRANSPLANT
     Dosage: 5.00 MG, D, ORAL
     Route: 048
     Dates: start: 20041223

REACTIONS (2)
  - PROTEINURIA [None]
  - PYELONEPHRITIS [None]
